FAERS Safety Report 6131237-1 (Version None)
Quarter: 2009Q1

REPORT INFORMATION
  Report Type: 
  Country: None (occurrence: None)
  Receive Date: 20090325
  Receipt Date: 20080313
  Transmission Date: 20090719
  Serious: Yes (Other)
  Sender: FDA-Public Use
  Company Number: US-BRISTOL-MYERS SQUIBB COMPANY-14052625

PATIENT
  Age: 49 Year
  Sex: Male
  Weight: 68 kg

DRUGS (3)
  1. ERBITUX [Suspect]
     Indication: TONSIL CANCER
     Dosage: INITIAL DOSE 400 MG/M2
     Route: 042
     Dates: start: 20080123, end: 20080123
  2. PERCOCET [Concomitant]
  3. SALAGEN [Concomitant]

REACTIONS (3)
  - HYPOAESTHESIA [None]
  - RESTLESSNESS [None]
  - URTICARIA [None]
